FAERS Safety Report 10155676 (Version 1)
Quarter: 2014Q2

REPORT INFORMATION
  Report Type: Spontaneous
  Country: FR (occurrence: FR)
  Receive Date: 20140506
  Receipt Date: 20140506
  Transmission Date: 20141212
  Serious: Yes (Other)
  Sender: FDA-Public Use
  Company Number: FR-TAKEDA-2014TUS003530

PATIENT
  Age: 53 Year
  Sex: Female

DRUGS (1)
  1. ADENURIC [Suspect]
     Indication: HYPERURICAEMIA
     Dosage: 80 MG, QD
     Route: 048
     Dates: start: 20131008, end: 20131113

REACTIONS (3)
  - Diabetes mellitus inadequate control [Recovered/Resolved]
  - Asthenia [Recovered/Resolved]
  - Hyperglycaemia [Recovered/Resolved]
